FAERS Safety Report 9482540 (Version 2)
Quarter: 2013Q3

REPORT INFORMATION
  Report Type: Spontaneous
  Country: US (occurrence: US)
  Receive Date: 20130828
  Receipt Date: 20130828
  Transmission Date: 20140515
  Serious: Yes (Death, Other)
  Sender: FDA-Public Use
  Company Number: US-PURDUE-USA-2013-0105558

PATIENT
  Sex: Male

DRUGS (2)
  1. OXYCONTIN (NDA 22-272) [Suspect]
     Indication: PAIN
  2. COCAINE [Suspect]
     Indication: SUBSTANCE ABUSE
     Route: 065

REACTIONS (2)
  - Completed suicide [Fatal]
  - Substance abuse [Unknown]
